FAERS Safety Report 6584035-9 (Version None)
Quarter: 2010Q1

REPORT INFORMATION
  Report Type: 
  Country: None (occurrence: None)
  Receive Date: 20100216
  Receipt Date: 20100128
  Transmission Date: 20100710
  Serious: No
  Sender: FDA-Public Use
  Company Number: US-ABBOTT-09P-163-0614421-00

PATIENT
  Sex: Female
  Weight: 108.05 kg

DRUGS (5)
  1. SIMCOR [Suspect]
     Indication: BLOOD CHOLESTEROL INCREASED
     Dates: start: 20091001, end: 20091210
  2. NOVALOG INSULIN [Concomitant]
     Indication: DIABETES MELLITUS
  3. LANTUS [Concomitant]
     Indication: DIABETES MELLITUS
  4. REMERON [Concomitant]
     Indication: ANXIETY
  5. CLONAZEPAM [Concomitant]
     Indication: ANXIETY

REACTIONS (7)
  - ANXIETY [None]
  - ASTHENIA [None]
  - BURNING SENSATION [None]
  - NAUSEA [None]
  - PRURITUS [None]
  - RASH PAPULAR [None]
  - URTICARIA [None]
